FAERS Safety Report 7266585-5 (Version None)
Quarter: 2011Q1

REPORT INFORMATION
  Report Type: 
  Country: None (occurrence: None)
  Receive Date: 20110131
  Receipt Date: 20110125
  Transmission Date: 20110831
  Serious: Yes (Hospitalization, Other)
  Sender: FDA-Public Use
  Company Number: US-MERCK-1007USA02871

PATIENT
  Age: 37 Year
  Sex: Male
  Weight: 104 kg

DRUGS (9)
  1. PRAVASTATIN SODIUM [Concomitant]
     Route: 048
  2. INSULIN DETEMIR [Concomitant]
     Indication: DIABETES MELLITUS
     Route: 058
  3. MEDIPLAST [Concomitant]
     Route: 065
  4. METFORMIN [Concomitant]
     Route: 048
  5. ASPIRIN [Concomitant]
     Route: 048
  6. TELMISARTAN [Concomitant]
     Route: 048
  7. LORATADINE [Concomitant]
     Route: 048
  8. JANUVIA [Suspect]
     Indication: TYPE 2 DIABETES MELLITUS
     Route: 048
     Dates: start: 20090604, end: 20100722
  9. UROXATRAL [Concomitant]
     Route: 048

REACTIONS (2)
  - NEPHROLITHIASIS [None]
  - INAPPROPRIATE SCHEDULE OF DRUG ADMINISTRATION [None]
